FAERS Safety Report 6076693-2 (Version None)
Quarter: 2009Q1

REPORT INFORMATION
  Report Type: 
  Country: None (occurrence: None)
  Receive Date: 20090213
  Receipt Date: 20090206
  Transmission Date: 20090719
  Serious: Yes (Other)
  Sender: FDA-Public Use
  Company Number: PHHY2009DE04316

PATIENT
  Sex: Male

DRUGS (6)
  1. RASILEZ [Suspect]
     Indication: HYPERTENSION
     Dosage: 150 MG, QD
     Dates: start: 20090116, end: 20090125
  2. RASILEZ [Suspect]
     Dosage: 300 MG, QD
     Dates: start: 20090126, end: 20090126
  3. RASILEZ [Suspect]
     Dosage: 450 MG/DAY (300-0-150)
     Dates: start: 20090127, end: 20090128
  4. RASILEZ [Suspect]
     Dosage: 150 MG, BID
     Dates: start: 20090129
  5. TOREM [Concomitant]
     Indication: HYPERTENSION
     Dosage: 10 MG/DAY
     Dates: start: 20090126
  6. DOXAZOSIN MESYLATE [Concomitant]
     Indication: HYPERTENSION
     Dosage: 1 MG/DAY
     Dates: start: 20090204

REACTIONS (3)
  - BLOOD PRESSURE INADEQUATELY CONTROLLED [None]
  - DRUG INEFFECTIVE [None]
  - HEART RATE INCREASED [None]
